FAERS Safety Report 4368541-3 (Version None)
Quarter: 2004Q2

REPORT INFORMATION
  Report Type: 
  Country: None (occurrence: None)
  Receive Date: 20040528
  Receipt Date: 20040525
  Transmission Date: 20050107
  Serious: Yes (Hospitalization)
  Sender: FDA-Public Use
  Company Number: FRWYE753811MAY04

PATIENT
  Age: 76 Year
  Sex: Female

DRUGS (3)
  1. EFFEXOR [Suspect]
     Indication: BIPOLAR I DISORDER
     Dosage: 50 MG 4X PER 1 DAY; ORAL
     Route: 048
     Dates: end: 20040401
  2. LITHIUM CARBONATE [Concomitant]
  3. LEVOTHYROX (LEVOTHYROXINE SODIUM) [Concomitant]

REACTIONS (2)
  - INTERSTITIAL LUNG DISEASE [None]
  - PNEUMONITIS [None]
